FAERS Safety Report 7884677-4 (Version None)
Quarter: 2011Q4

REPORT INFORMATION
  Report Type: 
  Country: None (occurrence: None)
  Receive Date: 20111102
  Receipt Date: 20111026
  Transmission Date: 20120403
  Serious: Yes (Other)
  Sender: FDA-Public Use
  Company Number: JP-PFIZER INC-2011234604

PATIENT
  Age: 70 Year
  Sex: Female
  Weight: 48.5 kg

DRUGS (4)
  1. SUTENT [Suspect]
     Dosage: UNK
     Route: 048
     Dates: start: 20110516, end: 20110612
  2. FENTANYL CITRATE [Suspect]
     Indication: PAIN
     Dosage: 4 MG, 1X/DAY
     Route: 062
     Dates: end: 20110611
  3. FENTANYL CITRATE [Suspect]
     Dosage: 8 MG, 1X/DAY
     Route: 062
     Dates: start: 20110611, end: 20110614
  4. FENTANYL CITRATE [Suspect]
     Dosage: 4 MG, 1X/DAY
     Route: 062
     Dates: start: 20110614

REACTIONS (2)
  - DEPRESSED LEVEL OF CONSCIOUSNESS [None]
  - STOMATITIS [None]
